FAERS Safety Report 21656837 (Version 1)
Quarter: 2022Q4

REPORT INFORMATION
  Report Type: Spontaneous
  Country: US (occurrence: None)
  Receive Date: 20221128
  Receipt Date: 20221128
  Transmission Date: 20230113
  Serious: Yes (Other)
  Sender: FDA-Public Use
  Company Number: None

PATIENT
  Age: 37 Year
  Sex: Male
  Weight: 84.1 kg

DRUGS (5)
  1. REMDESIVIR [Suspect]
     Active Substance: REMDESIVIR
     Dates: start: 20221121, end: 20221121
  2. AMIODARONE [Concomitant]
     Active Substance: AMIODARONE
  3. RIVAROXABAN [Concomitant]
     Active Substance: RIVAROXABAN
  4. METOPROLOL SUCCINATE [Concomitant]
     Active Substance: METOPROLOL SUCCINATE
  5. ONDANSETRON [Concomitant]
     Active Substance: ONDANSETRON

REACTIONS (2)
  - Ventricular fibrillation [None]
  - Infusion related reaction [None]

NARRATIVE: CASE EVENT DATE: 20221122
